FAERS Safety Report 14733334 (Version 1)
Quarter: 2018Q2

REPORT INFORMATION
  Report Type: Spontaneous
  Country: FR (occurrence: FR)
  Receive Date: 20180409
  Receipt Date: 20180409
  Transmission Date: 20180711
  Serious: Yes (Hospitalization)
  Sender: FDA-Public Use
  Company Number: FR-AXELLIA-001550

PATIENT
  Age: 66 Year
  Sex: Male
  Weight: 59 kg

DRUGS (18)
  1. GENTAMICIN. [Suspect]
     Active Substance: GENTAMICIN
     Indication: PROSTATITIS
     Route: 042
     Dates: start: 20180220, end: 20180222
  2. INEXIUM [Concomitant]
     Active Substance: ESOMEPRAZOLE
  3. BISOCE [Concomitant]
     Active Substance: BISOPROLOL
  4. LYRICA [Concomitant]
     Active Substance: PREGABALIN
  5. ROCEPHINE [Suspect]
     Active Substance: CEFTRIAXONE SODIUM
     Indication: PROSTATITIS
     Route: 042
     Dates: start: 20180219, end: 20180305
  6. CASPOFUNGIN [Concomitant]
     Active Substance: CASPOFUNGIN
  7. DOLIPRANE [Concomitant]
     Active Substance: ACETAMINOPHEN
  8. LOVENOX [Concomitant]
     Active Substance: ENOXAPARIN SODIUM
  9. MIANSERIN [Concomitant]
     Active Substance: MIANSERIN
  10. BRILIQUE [Concomitant]
     Active Substance: TICAGRELOR
  11. CHLORHYDRATE DE METOCLOPRAMIDE/METOCLOPRAMIDE/METOCLOPRAMIDE (CHLORHYDRATE DE)/METOCLOPRAMIDE (CHLOR [Concomitant]
  12. OXYNORM [Concomitant]
     Active Substance: OXYCODONE HYDROCHLORIDE
  13. VOGALENE [Concomitant]
     Active Substance: METOPIMAZINE
  14. VANCOMYCIN [Suspect]
     Active Substance: VANCOMYCIN
     Indication: PROSTATITIS
     Route: 042
     Dates: start: 20180219, end: 20180219
  15. TIENAM [Suspect]
     Active Substance: CILASTATIN SODIUM\IMIPENEM
     Indication: PROSTATITIS
     Route: 042
     Dates: start: 20180224
  16. KARDEGIC [Concomitant]
     Active Substance: ASPIRIN DL-LYSINE
  17. KEYTRUDA [Suspect]
     Active Substance: PEMBROLIZUMAB
     Indication: LUNG ADENOCARCINOMA
     Route: 042
     Dates: start: 20180201, end: 20180201
  18. FLUCONAZOLE. [Concomitant]
     Active Substance: FLUCONAZOLE

REACTIONS (1)
  - Histiocytosis haematophagic [Not Recovered/Not Resolved]

NARRATIVE: CASE EVENT DATE: 201802
